FAERS Safety Report 8818674 (Version 1)
Quarter: 2012Q4

REPORT INFORMATION
  Report Type: 
  Country: BR (occurrence: BR)
  Receive Date: 20121001
  Receipt Date: 20121001
  Transmission Date: 20130627
  Serious: Yes (Other)
  Sender: FDA-Public Use
  Company Number: PHHY2012BR084684

PATIENT
  Sex: Female
  Weight: 70 kg

DRUGS (6)
  1. EXELON PATCH [Suspect]
     Dosage: 4.6 mg,1 patch a day
  2. EXELON PATCH [Suspect]
     Dosage: 9.5 mg,1 patch a day
  3. LOTAR [Concomitant]
     Indication: HYPERTENSION
     Dosage: 1 tablet a day
     Route: 048
  4. RISPERIDONE [Concomitant]
     Indication: DEMENTIA ALZHEIMER^S TYPE
     Dosage: 0.5 DF, BID
  5. RISPERIDONE [Concomitant]
     Indication: DECREASED ACTIVITY
  6. HIDANTAL [Concomitant]
     Dosage: 1 DF, TID
     Route: 048

REACTIONS (6)
  - Loss of consciousness [Recovered/Resolved]
  - Convulsion [Recovered/Resolved]
  - Dementia Alzheimer^s type [Not Recovered/Not Resolved]
  - Decreased activity [Not Recovered/Not Resolved]
  - Apathy [Not Recovered/Not Resolved]
  - Neologism [Not Recovered/Not Resolved]
